FAERS Safety Report 25787146 (Version 3)
Quarter: 2025Q3

REPORT INFORMATION
  Report Type: Spontaneous
  Country: US (occurrence: US)
  Receive Date: 20250910
  Receipt Date: 20250912
  Transmission Date: 20251020
  Serious: Yes (Hospitalization)
  Sender: CHATTEM
  Company Number: US-OPELLA-2025OHG026784

PATIENT
  Sex: Female

DRUGS (1)
  1. ICY HOT PRO PAIN RELIEF CREAM W/ MICROBEADS [Suspect]
     Active Substance: CAMPHOR (SYNTHETIC)\MENTHOL
     Indication: Product used for unknown indication
     Route: 061

REACTIONS (1)
  - Application site vesicles [Not Recovered/Not Resolved]
